FAERS Safety Report 7689390-4 (Version None)
Quarter: 2011Q3

REPORT INFORMATION
  Report Type: 
  Country: None (occurrence: None)
  Receive Date: 20110817
  Receipt Date: 20110809
  Transmission Date: 20111222
  Serious: Yes (Other)
  Sender: FDA-Public Use
  Company Number: US-SANOFI-AVENTIS-2011SA051864

PATIENT
  Sex: Female

DRUGS (5)
  1. PLAVIX [Suspect]
     Route: 048
     Dates: end: 20030101
  2. PLAVIX [Suspect]
     Route: 048
     Dates: end: 20040101
  3. ASPIRIN [Suspect]
     Route: 065
     Dates: end: 20030101
  4. AMLODIPINE BESYLATE [Concomitant]
     Indication: BLOOD PRESSURE
  5. PLAVIX [Suspect]
     Route: 048
     Dates: end: 20110301

REACTIONS (2)
  - CEREBROVASCULAR ACCIDENT [None]
  - CHRONIC MYELOID LEUKAEMIA [None]
